FAERS Safety Report 24738622 (Version 1)
Quarter: 2024Q4

REPORT INFORMATION
  Report Type: Spontaneous
  Country: TR (occurrence: TR)
  Receive Date: 20241216
  Receipt Date: 20241216
  Transmission Date: 20250114
  Serious: Yes (Hospitalization, Other)
  Sender: PERRIGO
  Company Number: TR-PERRIGO-24TR011179

PATIENT
  Age: 16 Year
  Sex: Female

DRUGS (1)
  1. ELLA [Suspect]
     Active Substance: ULIPRISTAL ACETATE
     Indication: Contraception
     Dosage: 20 TIMES IN 2 MONTHS
     Route: 048

REACTIONS (3)
  - Myelosuppression [Not Recovered/Not Resolved]
  - Headache [Not Recovered/Not Resolved]
  - Inappropriate schedule of product administration [Not Recovered/Not Resolved]
